FAERS Safety Report 18296504 (Version 1)
Quarter: 2020Q3

REPORT INFORMATION
  Report Type: Spontaneous
  Country: NL (occurrence: DE)
  Receive Date: 20200922
  Receipt Date: 20200922
  Transmission Date: 20201103
  Serious: Yes (Hospitalization, Other)
  Sender: FDA-Public Use
  Company Number: DE-FRESENIUS KABI-FK202009606

PATIENT
  Age: 0 Hour
  Sex: Male
  Weight: 3.77 kg

DRUGS (2)
  1. ROCURONIUM [Suspect]
     Active Substance: ROCURONIUM BROMIDE
     Indication: ENDOTRACHEAL INTUBATION
  2. ROCURONIUM [Suspect]
     Active Substance: ROCURONIUM BROMIDE
     Indication: RELAXATION THERAPY
     Dosage: 20MG
     Route: 030
     Dates: start: 20200904, end: 20200904

REACTIONS (3)
  - Oliguria [Recovered/Resolved]
  - Neurological examination abnormal [Recovered/Resolved]
  - Hypokalaemia [Unknown]

NARRATIVE: CASE EVENT DATE: 20200904
